FAERS Safety Report 12000183 (Version 2)
Quarter: 2016Q3

REPORT INFORMATION
  Report Type: Spontaneous
  Country: US (occurrence: US)
  Receive Date: 20160204
  Receipt Date: 20160912
  Transmission Date: 20161109
  Serious: No
  Sender: FDA-Public Use
  Company Number: US-APOTEX-2015AP014761

PATIENT
  Age: 52 Year
  Sex: Male

DRUGS (2)
  1. PAROXETINE HYDROCHLORIDE. [Suspect]
     Active Substance: PAROXETINE HYDROCHLORIDE
     Indication: PRADER-WILLI SYNDROME
     Dosage: 40 MG, QD
     Route: 065
  2. LOXAPINE. [Interacting]
     Active Substance: LOXAPINE
     Indication: PRADER-WILLI SYNDROME
     Dosage: 5 MG DAILY FOR 2.4 YEARS
     Route: 065

REACTIONS (3)
  - Tardive dyskinesia [Unknown]
  - Drug interaction [Unknown]
  - Tremor [Unknown]
